FAERS Safety Report 23346295 (Version 5)
Quarter: 2024Q2

REPORT INFORMATION
  Report Type: Spontaneous
  Country: CA (occurrence: CA)
  Receive Date: 20231228
  Receipt Date: 20240410
  Transmission Date: 20240716
  Serious: Yes (Hospitalization, Other)
  Sender: FDA-Public Use
  Company Number: CA-KARYOPHARM-2023KPT001790

PATIENT

DRUGS (6)
  1. XPOVIO [Suspect]
     Active Substance: SELINEXOR
     Indication: Plasma cell myeloma
     Dosage: 100 MG, (20 X 5 TABLETS) ON DAY 1,8,15,22 AND 29 X 5 WEEKS
     Route: 048
     Dates: start: 20230808
  2. XPOVIO [Suspect]
     Active Substance: SELINEXOR
     Dosage: 100MG ON DAYS 1,8,15,22 AND 28 EVERY CYCLE.
     Route: 048
     Dates: start: 202308, end: 202312
  3. XPOVIO [Suspect]
     Active Substance: SELINEXOR
     Dosage: 80 MG, WEEKLY TAKE 4 TABLETS (80MG TOTAL) 1 TIME PER WEEK FOR 3 DOSES
     Route: 048
     Dates: start: 202401
  4. XPOVIO [Suspect]
     Active Substance: SELINEXOR
     Dosage: 100 MG, (20 X 5 TABLETS) ON DAY 1,8,15,22 AND 29  EVERY CYCLE
     Route: 048
     Dates: start: 202403, end: 202403
  5. DEXAMETHASONE [Concomitant]
     Active Substance: DEXAMETHASONE
     Dosage: UNK
  6. BORTEZOMIB [Concomitant]
     Active Substance: BORTEZOMIB
     Dosage: UNK

REACTIONS (13)
  - Septic shock [Unknown]
  - Acute kidney injury [Unknown]
  - Influenza [Unknown]
  - Cardiac failure congestive [Unknown]
  - Hypotension [Not Recovered/Not Resolved]
  - Rhinorrhoea [Unknown]
  - Eye disorder [Unknown]
  - Malaise [Unknown]
  - Decreased appetite [Not Recovered/Not Resolved]
  - Asthenia [Unknown]
  - Weight decreased [Not Recovered/Not Resolved]
  - Blood creatinine increased [Unknown]
  - Diarrhoea [Unknown]

NARRATIVE: CASE EVENT DATE: 20230101
